FAERS Safety Report 8858884 (Version 1)
Quarter: 2012Q4

REPORT INFORMATION
  Report Type: Spontaneous
  Country: US (occurrence: None)
  Receive Date: 20121019
  Receipt Date: 20121019
  Transmission Date: 20130627
  Serious: Yes (Hospitalization, Other)
  Sender: FDA-Public Use
  Company Number: ADR-2012-01893

PATIENT
  Sex: Male

DRUGS (2)
  1. LIORESAL [Suspect]
  2. DILAUDID (HYDROMORPHONE) [Concomitant]
     Indication: INTRACTABLE SPASTICITY

REACTIONS (9)
  - Pain [None]
  - Fatigue [None]
  - Nausea [None]
  - Drug withdrawal syndrome [None]
  - Hypertension [None]
  - Device malfunction [None]
  - Tachycardia [None]
  - Muscle spasms [None]
  - Respiratory rate increased [None]
